FAERS Safety Report 5277984-5 (Version None)
Quarter: 2007Q1

REPORT INFORMATION
  Report Type: 
  Country: None (occurrence: None)
  Receive Date: 20070321
  Receipt Date: 20070312
  Transmission Date: 20070707
  Serious: Yes (Other)
  Sender: FDA-Public Use
  Company Number: THQ2007A00090

PATIENT
  Age: 36 Year
  Sex: Female

DRUGS (7)
  1. PROSTAP SR (LEUOPROLIDE ACETATE) (INJECTION) [Suspect]
     Indication: ENDOMETRIOSIS
     Dosage: 3.75 MG (3.75 MG, 1 IN 4 WK) SUBCUTANEOUS
     Route: 058
     Dates: start: 20060206, end: 20070125
  2. TIBOLONE [Concomitant]
  3. FUVATHALMO (OPHTHALMOLOGICALS) (DROPS) [Concomitant]
  4. ZINERYT (SOLUTION) [Concomitant]
  5. PROVERA [Concomitant]
  6. PEPPERMINT OIL (MENTHA X PIPERITA OIL) (CAPSULES) [Concomitant]
  7. MEBEVERINE (TABLETS) [Concomitant]

REACTIONS (12)
  - ARTHROPATHY [None]
  - BACK PAIN [None]
  - CONDITION AGGRAVATED [None]
  - CONJUNCTIVAL HAEMORRHAGE [None]
  - HOT FLUSH [None]
  - HYPERHIDROSIS [None]
  - HYPOTRICHOSIS [None]
  - JOINT DISLOCATION [None]
  - LETHARGY [None]
  - PAIN OF SKIN [None]
  - SCOLIOSIS [None]
  - SPINAL OSTEOARTHRITIS [None]
